FAERS Safety Report 20039686 (Version 1)
Quarter: 2021Q4

REPORT INFORMATION
  Report Type: Report from Study
  Country: US (occurrence: US)
  Receive Date: 20211106
  Receipt Date: 20211106
  Transmission Date: 20220303
  Serious: Yes (Hospitalization, Other)
  Sender: FDA-Public Use
  Company Number: US-ABBVIE-21K-163-4144302-00

PATIENT
  Sex: Female

DRUGS (3)
  1. IMBRUVICA [Suspect]
     Active Substance: IBRUTINIB
     Indication: Chronic lymphocytic leukaemia
     Route: 048
     Dates: start: 202106
  2. LEVOTHYROXINE [Concomitant]
     Active Substance: LEVOTHYROXINE
     Indication: Product used for unknown indication
     Dosage: 0.5MG DAILY
  3. IRON [Concomitant]
     Active Substance: IRON
     Indication: Anaemia
     Dosage: PILLS

REACTIONS (6)
  - Acute myocardial infarction [Unknown]
  - Lethargy [Unknown]
  - Asthenia [Recovering/Resolving]
  - Chest pain [Unknown]
  - Anaemia [Unknown]
  - White blood cell count increased [Unknown]
